FAERS Safety Report 19517896 (Version 2)
Quarter: 2021Q3

REPORT INFORMATION
  Report Type: Spontaneous
  Country: DE (occurrence: DE)
  Receive Date: 20210712
  Receipt Date: 20210730
  Transmission Date: 20211014
  Serious: No
  Sender: FDA-Public Use
  Company Number: DE-LUPIN PHARMACEUTICALS INC.-2021-11288

PATIENT
  Age: 51 Year
  Sex: Female

DRUGS (1)
  1. OXYCODONE HCL 2 X TAGLICH HORMOSAN 40 MG RETARDTABLETTEN [Suspect]
     Active Substance: OXYCODONE HYDROCHLORIDE
     Indication: PRODUCT USED FOR UNKNOWN INDICATION
     Dosage: UNK,ONCE A DAY (MORNING).
     Route: 048
     Dates: start: 20210624

REACTIONS (4)
  - Product substitution issue [Unknown]
  - Intercepted product prescribing error [Unknown]
  - Off label use [Unknown]
  - No adverse event [Unknown]

NARRATIVE: CASE EVENT DATE: 20210624
